FAERS Safety Report 7944018-0 (Version None)
Quarter: 2011Q4

REPORT INFORMATION
  Report Type: 
  Country: None (occurrence: None)
  Receive Date: 20111128
  Receipt Date: 20111115
  Transmission Date: 20120403
  Serious: Yes (Other)
  Sender: FDA-Public Use
  Company Number: FR-ASTRAZENECA-2011SE70114

PATIENT
  Age: 69 Year
  Sex: Male

DRUGS (1)
  1. ATACAND [Suspect]
     Indication: CARDIAC FAILURE
     Route: 048
     Dates: start: 20090101, end: 20110214

REACTIONS (1)
  - RENAL FAILURE ACUTE [None]
